FAERS Safety Report 7909855-7 (Version None)
Quarter: 2011Q4

REPORT INFORMATION
  Report Type: 
  Country: None (occurrence: None)
  Receive Date: 20111111
  Receipt Date: 20111102
  Transmission Date: 20120403
  Serious: Yes (Life-Threatening)
  Sender: FDA-Public Use
  Company Number: JP-MERCK-1111USA00818

PATIENT
  Age: 70 Year
  Sex: Female

DRUGS (2)
  1. STROMECTOL [Suspect]
     Indication: ACARODERMATITIS
     Dosage: DOSING FREQUENCY UNKNOWN
     Route: 048
     Dates: start: 20111004, end: 20111004
  2. STROMECTOL [Suspect]
     Dosage: DOSING FREQUENCY UNKNOWN
     Route: 048
     Dates: start: 20111011, end: 20111011

REACTIONS (1)
  - PLATELET COUNT DECREASED [None]
